FAERS Safety Report 17904540 (Version 1)
Quarter: 2020Q2

REPORT INFORMATION
  Report Type: Spontaneous
  Country: US (occurrence: US)
  Receive Date: 20200616
  Receipt Date: 20200616
  Transmission Date: 20200714
  Serious: No
  Sender: FDA-Public Use
  Company Number: US-ROCHE-2338605

PATIENT
  Sex: Female

DRUGS (20)
  1. ACTEMRA [Suspect]
     Active Substance: TOCILIZUMAB
     Indication: RHEUMATOID ARTHRITIS
     Route: 042
     Dates: start: 20180407
  2. MEMANTINE. [Concomitant]
     Active Substance: MEMANTINE
  3. BACLOFEN. [Concomitant]
     Active Substance: BACLOFEN
  4. ESTRADIOL. [Concomitant]
     Active Substance: ESTRADIOL
  5. FUROSEMIDE. [Concomitant]
     Active Substance: FUROSEMIDE
  6. METHOTREXATE. [Concomitant]
     Active Substance: METHOTREXATE
  7. MUCINEX [Concomitant]
     Active Substance: GUAIFENESIN
  8. DEXILANT [Concomitant]
     Active Substance: DEXLANSOPRAZOLE
  9. AZELASTINE. [Concomitant]
     Active Substance: AZELASTINE HYDROCHLORIDE
  10. ONDANSETRON [Concomitant]
     Active Substance: ONDANSETRON
  11. FOLIC ACID. [Concomitant]
     Active Substance: FOLIC ACID
  12. MOVIPREP [Concomitant]
     Active Substance: ASCORBIC ACID\POLYETHYLENE GLYCOL 3350\POTASSIUM CHLORIDE\SODIUM ASCORBATE\SODIUM CHLORIDE\SODIUM SULFATE
  13. PREDNISONE. [Concomitant]
     Active Substance: PREDNISONE
  14. ACETYL-L-CARNITINE [Concomitant]
  15. DIOSMIN [Concomitant]
     Active Substance: DIOSMIN
  16. AMOXICILLIN. [Concomitant]
     Active Substance: AMOXICILLIN
  17. CETRIZINE [Concomitant]
     Active Substance: CETIRIZINE HYDROCHLORIDE
  18. PROVENTIL [Concomitant]
     Active Substance: ALBUTEROL
  19. POTASSIUM [Concomitant]
     Active Substance: POTASSIUM
  20. HYDROCORTISONE. [Concomitant]
     Active Substance: HYDROCORTISONE

REACTIONS (1)
  - Pain [Unknown]
